FAERS Safety Report 4790528-7 (Version None)
Quarter: 2005Q3

REPORT INFORMATION
  Report Type: 
  Country: None (occurrence: None)
  Receive Date: 20050914
  Receipt Date: 20041228
  Transmission Date: 20060218
  Serious: Yes (Hospitalization)
  Sender: FDA-Public Use
  Company Number: 163-20785-04120626

PATIENT
  Age: 69 Year
  Sex: Male

DRUGS (6)
  1. THALOMID [Suspect]
     Indication: RENAL CELL CARCINOMA STAGE UNSPECIFIED
     Dosage: 200 MG, QD, ORAL
     Route: 048
     Dates: start: 20041202, end: 20041230
  2. PEPCID [Concomitant]
  3. PLAVIX [Concomitant]
  4. PRAVACHOL [Concomitant]
  5. ALLOPURINOL [Concomitant]
  6. GEMFIBROZIL [Concomitant]

REACTIONS (4)
  - EOSINOPHILIA [None]
  - HYPOTENSION [None]
  - LEUKOPENIA [None]
  - RASH [None]
